FAERS Safety Report 9883721 (Version 1)
Quarter: 2014Q1

REPORT INFORMATION
  Report Type: Spontaneous
  Country: US (occurrence: None)
  Receive Date: 20140205
  Receipt Date: 20140205
  Transmission Date: 20141002
  Serious: Yes (Death)
  Sender: FDA-Public Use
  Company Number: IMP_07251_2014

PATIENT
  Age: 41 Year
  Sex: Male

DRUGS (5)
  1. ALPRAZOLAM [Suspect]
     Indication: PRODUCT USED FOR UNKNOWN INDICATION
  2. HYDROMORPHONE [Suspect]
     Indication: PRODUCT USED FOR UNKNOWN INDICATION
  3. CARISOPRODOL [Suspect]
     Indication: PRODUCT USED FOR UNKNOWN INDICATION
  4. ACETAMINOPHEN W/OXYCODONE (NOT SPECIFIED) [Suspect]
     Indication: PRODUCT USED FOR UNKNOWN INDICATION
  5. BENZODIAZEPINE RELATED DRUGS [Suspect]
     Indication: PRODUCT USED FOR UNKNOWN INDICATION

REACTIONS (5)
  - Poisoning [None]
  - Cardiac arrest [None]
  - Respiratory arrest [None]
  - Exposure via ingestion [None]
  - Completed suicide [None]
